FAERS Safety Report 4339167-2 (Version None)
Quarter: 2004Q2

REPORT INFORMATION
  Report Type: 
  Country: None (occurrence: None)
  Receive Date: 20040412
  Receipt Date: 20040401
  Transmission Date: 20050107
  Serious: Yes (Hospitalization)
  Sender: FDA-Public Use
  Company Number: TIF2004A00017

PATIENT
  Age: 69 Year
  Sex: Male

DRUGS (4)
  1. ACTOS [Suspect]
     Dosage: 30 MG (30 MG, 1 IN 1 D), PER ORAL
     Route: 048
     Dates: start: 20040311, end: 20040325
  2. LORTAAN (LOSARTAN POTASSIUM) [Concomitant]
  3. TRIATEC HCT (RAMPRIL + HCTZ) [Concomitant]
  4. KAYEXALATE [Concomitant]

REACTIONS (2)
  - FLUID RETENTION [None]
  - PULMONARY CONGESTION [None]
